FAERS Safety Report 5595175-5 (Version None)
Quarter: 2008Q1

REPORT INFORMATION
  Report Type: 
  Country: None (occurrence: None)
  Receive Date: 20080117
  Receipt Date: 20080114
  Transmission Date: 20080703
  Serious: Yes (Life-Threatening, Hospitalization)
  Sender: FDA-Public Use
  Company Number: US-GILEAD-2008-0014942

PATIENT
  Sex: Female
  Weight: 76.272 kg

DRUGS (11)
  1. LETAIRIS [Suspect]
     Indication: PULMONARY HYPERTENSION
     Route: 048
     Dates: start: 20070918, end: 20080104
  2. LETAIRIS [Suspect]
     Route: 048
     Dates: start: 20080104
  3. DILTIAZEM HCL [Concomitant]
     Indication: ESSENTIAL HYPERTENSION
     Route: 048
  4. LOPRESSOR [Concomitant]
     Indication: ESSENTIAL HYPERTENSION
     Route: 048
  5. DIGOXIN [Concomitant]
     Indication: ESSENTIAL HYPERTENSION
     Route: 048
  6. ZOCOR [Concomitant]
     Indication: HYPERCHOLESTEROLAEMIA
     Route: 048
  7. RANITIDINE [Concomitant]
     Indication: GASTROOESOPHAGEAL REFLUX DISEASE
     Route: 048
  8. LASIX [Concomitant]
     Indication: PULMONARY HYPERTENSION
     Route: 048
  9. COUMADIN [Concomitant]
     Indication: ANTICOAGULANT THERAPY
     Route: 048
  10. LEVOTHYROXINE SODIUM [Concomitant]
     Indication: HYPOTHYROIDISM
     Route: 048
  11. LORATADINE [Concomitant]
     Indication: RHINITIS ALLERGIC
     Route: 048

REACTIONS (4)
  - DYSPNOEA [None]
  - FULL BLOOD COUNT DECREASED [None]
  - OEDEMA PERIPHERAL [None]
  - RENAL IMPAIRMENT [None]
